FAERS Safety Report 13483887 (Version 2)
Quarter: 2017Q2

REPORT INFORMATION
  Report Type: Spontaneous
  Country: US (occurrence: US)
  Receive Date: 20170425
  Receipt Date: 20170518
  Transmission Date: 20170830
  Serious: Yes (Other)
  Sender: FDA-Public Use
  Company Number: US-ROCHE-1922232

PATIENT
  Sex: Female

DRUGS (34)
  1. BRINTELLIX [Concomitant]
     Active Substance: VORTIOXETINE HYDROBROMIDE
     Route: 065
  2. LORAZEPAM. [Concomitant]
     Active Substance: LORAZEPAM
     Route: 065
  3. NASACORT [Concomitant]
     Active Substance: TRIAMCINOLONE ACETONIDE
  4. PROVENTIL [Concomitant]
     Active Substance: ALBUTEROL
  5. CYMBALTA [Concomitant]
     Active Substance: DULOXETINE HYDROCHLORIDE
  6. CODEINE SULPHATE [Concomitant]
     Active Substance: CODEINE SULFATE
     Route: 065
  7. SKELAXIN [Suspect]
     Active Substance: METAXALONE
     Indication: PRODUCT USED FOR UNKNOWN INDICATION
     Route: 065
  8. SINGULAIR [Concomitant]
     Active Substance: MONTELUKAST SODIUM
  9. TRILEPTAL [Concomitant]
     Active Substance: OXCARBAZEPINE
  10. LAMICTAL [Concomitant]
     Active Substance: LAMOTRIGINE
  11. PREMARIN [Suspect]
     Active Substance: ESTROGENS, CONJUGATED
     Indication: PRODUCT USED FOR UNKNOWN INDICATION
     Dosage: PREMARIN VAGINAL CREAM STRENGRTH: 0.625 (UNIT NOT REPORTED) ?0.5 GTT X 2 WEEKS THEN FOR EVERY 2-3 WE
     Route: 067
  12. FETZIMA [Concomitant]
     Active Substance: LEVOMILNACIPRAN HYDROCHLORIDE
     Route: 065
  13. XOPENEX [Concomitant]
     Active Substance: LEVALBUTEROL HYDROCHLORIDE
     Route: 065
  14. BEPREVE [Concomitant]
     Active Substance: BEPOTASTINE BESILATE
     Route: 065
  15. OMNARIS [Concomitant]
     Active Substance: CICLESONIDE
  16. WELLBUTRIN [Concomitant]
     Active Substance: BUPROPION HYDROCHLORIDE
  17. SYNTHROID [Concomitant]
     Active Substance: LEVOTHYROXINE SODIUM
  18. RED YEAST RICE [Concomitant]
     Active Substance: DIETARY SUPPLEMENT
     Route: 065
  19. XOLAIR [Suspect]
     Active Substance: OMALIZUMAB
     Indication: PRODUCT USED FOR UNKNOWN INDICATION
     Route: 065
  20. PRISTIQ EXTENDED-RELEASE [Suspect]
     Active Substance: DESVENLAFAXINE SUCCINATE
     Indication: PRODUCT USED FOR UNKNOWN INDICATION
     Route: 065
  21. LYRICA [Suspect]
     Active Substance: PREGABALIN
     Indication: PRODUCT USED FOR UNKNOWN INDICATION
     Route: 065
  22. VIIBRYD [Concomitant]
     Active Substance: VILAZODONE HYDROCHLORIDE
     Route: 065
  23. NEXIUM [Concomitant]
     Active Substance: ESOMEPRAZOLE MAGNESIUM
  24. SYMBICORT [Concomitant]
     Active Substance: BUDESONIDE\FORMOTEROL FUMARATE DIHYDRATE
  25. TIZANIDINE. [Concomitant]
     Active Substance: TIZANIDINE
     Route: 065
  26. GABAPENTIN. [Concomitant]
     Active Substance: GABAPENTIN
     Route: 065
  27. ETODOLAC. [Concomitant]
     Active Substance: ETODOLAC
     Route: 065
  28. MORPHINE [Concomitant]
     Active Substance: MORPHINE
  29. SAVELLA [Concomitant]
     Active Substance: MILNACIPRAN HYDROCHLORIDE
  30. ACIPHEX [Concomitant]
     Active Substance: RABEPRAZOLE SODIUM
  31. AMOXI [Concomitant]
     Active Substance: AMOXICILLIN
  32. MELOXICAM. [Concomitant]
     Active Substance: MELOXICAM
  33. STRATTERA [Concomitant]
     Active Substance: ATOMOXETINE HYDROCHLORIDE
     Route: 065
  34. GABAPENTIN. [Concomitant]
     Active Substance: GABAPENTIN
     Route: 065

REACTIONS (1)
  - Swollen tongue [Unknown]
